FAERS Safety Report 21369061 (Version 1)
Quarter: 2022Q3

REPORT INFORMATION
  Report Type: Spontaneous
  Country: DE (occurrence: DE)
  Receive Date: 20220923
  Receipt Date: 20220923
  Transmission Date: 20221027
  Serious: Yes (Hospitalization, Other)
  Sender: FDA-Public Use
  Company Number: DE-ADRED-06946-01

PATIENT
  Age: 69 Year
  Sex: Female

DRUGS (3)
  1. CITALOPRAM HYDROBROMIDE [Suspect]
     Active Substance: CITALOPRAM HYDROBROMIDE
     Indication: Product used for unknown indication
     Dosage: 20 MILLIGRAM, ONCE A DAY
     Route: 048
  2. RAMIPRIL [Concomitant]
     Active Substance: RAMIPRIL
     Indication: Product used for unknown indication
     Dosage: 5 MILLIGRAM, ONCE A DAY (1-0-0-0)
     Route: 048
  3. FOSTER [Concomitant]
     Active Substance: BECLOMETHASONE\FORMOTEROL
     Indication: Product used for unknown indication
     Dosage: UNK UNK, TWO TIMES A DAY (100|6 ?G, 0-1-1-0, DOSIERAEROSOL)

REACTIONS (4)
  - Dyspepsia [Unknown]
  - Lower gastrointestinal haemorrhage [Unknown]
  - Abdominal pain [Unknown]
  - Haematochezia [Unknown]
